FAERS Safety Report 14959279 (Version 1)
Quarter: 2018Q2

REPORT INFORMATION
  Report Type: Spontaneous
  Country: US (occurrence: US)
  Receive Date: 20180531
  Receipt Date: 20180531
  Transmission Date: 20180711
  Serious: No
  Sender: FDA-Public Use
  Company Number: US-TEVA-2018-US-897834

PATIENT
  Sex: Female

DRUGS (3)
  1. BUPROPION. [Suspect]
     Active Substance: BUPROPION
     Indication: DEPRESSION
  2. BUPROPION. [Suspect]
     Active Substance: BUPROPION
     Indication: HEADACHE
  3. BUPROPION. [Suspect]
     Active Substance: BUPROPION
     Indication: MIGRAINE

REACTIONS (3)
  - Product use in unapproved indication [Unknown]
  - Medication residue present [Unknown]
  - Drug ineffective [Unknown]
